FAERS Safety Report 7245511-9 (Version None)
Quarter: 2011Q1

REPORT INFORMATION
  Report Type: 
  Country: None (occurrence: None)
  Receive Date: 20110126
  Receipt Date: 20110120
  Transmission Date: 20110831
  Serious: Yes (Hospitalization)
  Sender: FDA-Public Use
  Company Number: US-KINGPHARMUSA00001-K201100055

PATIENT
  Sex: Female
  Weight: 65.76 kg

DRUGS (4)
  1. ALTACE [Suspect]
     Indication: CORONARY ARTERY OCCLUSION
     Dosage: 5 MG, QD
     Route: 048
     Dates: end: 20050101
  2. ALTACE [Suspect]
     Indication: BLOOD PRESSURE SYSTOLIC INCREASED
  3. FISH OIL [Concomitant]
     Dosage: DAILY
     Route: 048
  4. ASPIRIN [Concomitant]
     Dosage: 81 MG, QD
     Route: 048

REACTIONS (7)
  - ATRIAL FIBRILLATION [None]
  - BLOOD CREATININE INCREASED [None]
  - CORONARY ARTERY OCCLUSION [None]
  - VENTRICULAR EXTRASYSTOLES [None]
  - BLOOD UREA INCREASED [None]
  - PALPITATIONS [None]
  - DISORIENTATION [None]
